FAERS Safety Report 18469219 (Version 1)
Quarter: 2020Q4

REPORT INFORMATION
  Report Type: Spontaneous
  Country: CN (occurrence: CN)
  Receive Date: 20201105
  Receipt Date: 20201105
  Transmission Date: 20210114
  Serious: Yes (Life-Threatening, Hospitalization, Other)
  Sender: FDA-Public Use
  Company Number: CN-BAYER-2020-231478

PATIENT
  Age: 59 Year
  Sex: Male
  Weight: 60 kg

DRUGS (1)
  1. AVELOX [Suspect]
     Active Substance: MOXIFLOXACIN HYDROCHLORIDE
     Indication: CELLULITIS
     Dosage: 0.4 G, QD
     Route: 048
     Dates: start: 20190213, end: 20190223

REACTIONS (4)
  - Platelet count decreased [Recovering/Resolving]
  - Haemorrhage subcutaneous [Recovering/Resolving]
  - Thrombocytopenic purpura [Recovering/Resolving]
  - Henoch-Schonlein purpura [None]

NARRATIVE: CASE EVENT DATE: 20190225
